FAERS Safety Report 17429355 (Version 2)
Quarter: 2020Q1

REPORT INFORMATION
  Report Type: Spontaneous
  Country: JP (occurrence: JP)
  Receive Date: 20200218
  Receipt Date: 20200228
  Transmission Date: 20200409
  Serious: No
  Sender: FDA-Public Use
  Company Number: JP-MYLANLABS-2020M1017193

PATIENT
  Age: 62 Year
  Sex: Female

DRUGS (1)
  1. ERYTHROCIN [Suspect]
     Active Substance: ERYTHROMYCIN LACTOBIONATE
     Indication: BRONCHITIS
     Dosage: IN THE MORNING AND IN THE EVENING
     Route: 048

REACTIONS (2)
  - Urine abnormality [Unknown]
  - Cystitis [Unknown]
